APPROVED DRUG PRODUCT: GLYCOPREP
Active Ingredient: POLYETHYLENE GLYCOL 3350; POTASSIUM CHLORIDE; SODIUM BICARBONATE; SODIUM CHLORIDE; SODIUM SULFATE ANHYDROUS
Strength: 236GM/BOT;2.97GM/BOT;6.74GM/BOT;5.86GM/BOT;22.74GM/BOT
Dosage Form/Route: FOR SUSPENSION;ORAL
Application: A072319 | Product #001
Applicant: GOLDLINE LABORATORIES INC
Approved: Dec 23, 1988 | RLD: No | RS: No | Type: DISCN